FAERS Safety Report 8982369 (Version 2)
Quarter: 2013Q1

REPORT INFORMATION
  Report Type: Spontaneous
  Country: US (occurrence: US)
  Receive Date: 20121222
  Receipt Date: 20130109
  Transmission Date: 20140127
  Serious: No
  Sender: FDA-Public Use
  Company Number: US-ASTRAZENECA-2012SE88235

PATIENT
  Sex: Male

DRUGS (4)
  1. PULMICORT FLEXHALER [Suspect]
     Route: 055
  2. LISINOPRIL/HCTZ [Suspect]
     Dosage: 20/25, UNKNOWN
     Route: 048
  3. PRO AIR [Concomitant]
  4. FLONASE [Concomitant]

REACTIONS (2)
  - Hearing impaired [Unknown]
  - Deafness [Unknown]
